FAERS Safety Report 17300148 (Version 1)
Quarter: 2020Q1

REPORT INFORMATION
  Report Type: Spontaneous
  Country: US (occurrence: US)
  Receive Date: 20200122
  Receipt Date: 20200122
  Transmission Date: 20200409
  Serious: No
  Sender: FDA-Public Use
  Company Number: US-ALLERGAN-1916700US

PATIENT
  Age: 80 Year
  Sex: Female

DRUGS (2)
  1. RESTASIS [Suspect]
     Active Substance: CYCLOSPORINE
     Indication: DRY EYE
     Dosage: 2 GTT, BID
     Route: 047
     Dates: start: 20190412
  2. REFRESH OPTIVE MEGA 3 [Concomitant]
     Dosage: 3-4 TIMES PER DAY
     Route: 047

REACTIONS (2)
  - Incorrect dose administered [Unknown]
  - Product container issue [Unknown]

NARRATIVE: CASE EVENT DATE: 20190412
